FAERS Safety Report 5155945-4 (Version None)
Quarter: 2006Q4

REPORT INFORMATION
  Report Type: 
  Country: None (occurrence: None)
  Receive Date: 20061114
  Receipt Date: 20061101
  Transmission Date: 20070319
  Serious: Yes (Death)
  Sender: FDA-Public Use
  Company Number: HQWYE305203NOV06

PATIENT
  Age: 23 Year

DRUGS (3)
  1. ADVIL [Suspect]
     Indication: DRUG ABUSER
     Dosage: ORAL
     Route: 048
  2. BUPROPION HCL [Suspect]
     Indication: DRUG USE FOR UNKNOWN INDICATION
  3. COCAINE (COCAINE) [Suspect]
     Indication: DRUG USE FOR UNKNOWN INDICATION

REACTIONS (3)
  - COMPLETED SUICIDE [None]
  - DRUG ABUSER [None]
  - INTENTIONAL OVERDOSE [None]
